FAERS Safety Report 7131450-0 (Version None)
Quarter: 2010Q4

REPORT INFORMATION
  Report Type: 
  Country: None (occurrence: None)
  Receive Date: 20101201
  Receipt Date: 20101126
  Transmission Date: 20110411
  Serious: Yes (Other)
  Sender: FDA-Public Use
  Company Number: GB-PFIZER INC-2010158944

PATIENT
  Age: 80 Year
  Sex: Female
  Weight: 53.6 kg

DRUGS (9)
  1. DOXYCYCLINE HYCLATE [Suspect]
     Indication: LOWER RESPIRATORY TRACT INFECTION
     Dosage: 100 MG, UNK
     Route: 048
     Dates: start: 20101114, end: 20101114
  2. ALENDRONIC ACID [Concomitant]
     Dosage: 70 MG, WEEKLY
     Route: 048
  3. AMOXICILLIN [Concomitant]
     Indication: LOWER RESPIRATORY TRACT INFECTION
     Dosage: 250 MG, UNK
     Route: 048
     Dates: start: 20101109, end: 20101116
  4. BISOPROLOL [Concomitant]
     Dosage: 5 MG, 1X/DAY
  5. CALCICHEW-D3 [Concomitant]
     Dosage: 1 DF, 1X/DAY
  6. LANSOPRAZOLE [Concomitant]
     Dosage: 30 MG, UNK
     Route: 048
  7. MIRTAZAPINE [Concomitant]
     Dosage: 15 MG, UNK
     Route: 048
  8. SIMVASTATIN [Concomitant]
     Dosage: 10 MG, 1X/DAY
     Route: 048
  9. WARFARIN [Concomitant]
     Route: 048

REACTIONS (4)
  - DIZZINESS [None]
  - RASH [None]
  - VISION BLURRED [None]
  - VOMITING [None]
